FAERS Safety Report 8611842-0 (Version None)
Quarter: 2012Q3

REPORT INFORMATION
  Report Type: 
  Country: None (occurrence: None)
  Receive Date: 20120822
  Receipt Date: 20120814
  Transmission Date: 20120928
  Serious: Yes (Hospitalization, Other)
  Sender: FDA-Public Use
  Company Number: US-BAYER-2011-075395

PATIENT
  Age: 32 Year
  Sex: Female
  Weight: 72.562 kg

DRUGS (7)
  1. LEVAQUIN [Concomitant]
     Dosage: 500 MG, QD
     Dates: start: 20100602
  2. MAXALT [Concomitant]
     Indication: HEADACHE
     Dosage: UNK
     Dates: start: 19990101, end: 20110101
  3. ADDERALL XR 10 [Concomitant]
     Dosage: 30 MG,24 HR
     Dates: start: 20090818, end: 20100922
  4. YASMIN [Suspect]
     Dosage: UNK
     Dates: start: 20050101, end: 20070101
  5. SOMA [Concomitant]
     Dosage: 350 MG, OCCASIONAL
     Dates: start: 20090818, end: 20100922
  6. METRONIDAZOLE [Concomitant]
     Dosage: 500 MG, BID
     Dates: start: 20100602
  7. AMBIEN [Concomitant]
     Dosage: 10 MG, UNK
     Dates: start: 20090818, end: 20100922

REACTIONS (5)
  - PAIN [None]
  - CHOLECYSTITIS ACUTE [None]
  - INJURY [None]
  - GALLBLADDER INJURY [None]
  - RENAL INJURY [None]
